FAERS Safety Report 6100328-3 (Version None)
Quarter: 2009Q1

REPORT INFORMATION
  Report Type: 
  Country: None (occurrence: None)
  Receive Date: 20090303
  Receipt Date: 20090224
  Transmission Date: 20090719
  Serious: Yes (Life-Threatening, Hospitalization)
  Sender: FDA-Public Use
  Company Number: DE-MERCK-0902DEU00361

PATIENT
  Age: 82 Year
  Sex: Female

DRUGS (8)
  1. ZOCOR [Suspect]
     Indication: HYPERLIPIDAEMIA
     Route: 048
     Dates: start: 20070101, end: 20080328
  2. ASPIRIN [Suspect]
     Indication: MYOCARDIAL INFARCTION
     Route: 048
     Dates: start: 20071101, end: 20080328
  3. CLOPIDOGREL BISULFATE [Suspect]
     Indication: MYOCARDIAL INFARCTION
     Route: 048
     Dates: start: 20071101, end: 20080328
  4. PHENPROCOUMON [Suspect]
     Indication: ATRIAL FIBRILLATION
     Route: 048
     Dates: end: 20080328
  5. BISOPROLOL [Concomitant]
     Indication: CORONARY ARTERY DISEASE
     Route: 048
     Dates: start: 20070101
  6. PANTOPRAZOLE SODIUM [Concomitant]
     Route: 048
     Dates: start: 20071101
  7. RAMIPRIL [Concomitant]
     Indication: HYPERTENSION
     Route: 048
  8. TORSEMIDE [Concomitant]
     Indication: HYPERTENSION
     Route: 048

REACTIONS (1)
  - GASTROINTESTINAL HAEMORRHAGE [None]
